FAERS Safety Report 8066079-3 (Version None)
Quarter: 2012Q1

REPORT INFORMATION
  Report Type: 
  Country: None (occurrence: None)
  Receive Date: 20120124
  Receipt Date: 20120110
  Transmission Date: 20120608
  Serious: Yes (Other)
  Sender: FDA-Public Use
  Company Number: US-UCBSA-049436

PATIENT
  Age: 51 Year
  Sex: Female

DRUGS (1)
  1. CIMZIA [Suspect]
     Indication: CROHN'S DISEASE
     Route: 058
     Dates: start: 20111001

REACTIONS (4)
  - ANAEMIA [None]
  - INFLUENZA [None]
  - GASTROINTESTINAL HAEMORRHAGE [None]
  - PARAESTHESIA [None]
